FAERS Safety Report 6409916-8 (Version None)
Quarter: 2009Q4

REPORT INFORMATION
  Report Type: 
  Country: None (occurrence: None)
  Receive Date: 20091022
  Receipt Date: 20091014
  Transmission Date: 20100525
  Serious: Yes (Other)
  Sender: FDA-Public Use
  Company Number: GB-ASTRAZENECA-2009SE20283

PATIENT
  Sex: Female

DRUGS (1)
  1. BUPIVACAINE [Suspect]
     Indication: NERVE BLOCK
     Route: 053

REACTIONS (2)
  - COMPLEX REGIONAL PAIN SYNDROME [None]
  - HYPOAESTHESIA [None]
